FAERS Safety Report 4733375-4 (Version None)
Quarter: 2005Q3

REPORT INFORMATION
  Report Type: 
  Country: None (occurrence: None)
  Receive Date: 20050801
  Receipt Date: 20050801
  Transmission Date: 20060218
  Serious: Yes (Hospitalization)
  Sender: FDA-Public Use
  Company Number: None

PATIENT
  Age: 69 Year
  Sex: Male

DRUGS (9)
  1. FUROSEMIDE [Suspect]
     Indication: HYPERTENSION
     Dosage: 40 MG QD
     Dates: start: 20020201
  2. METOPROLOL [Suspect]
     Indication: HYPERTENSION
     Dosage: 80 MG
     Dates: start: 20021101
  3. CABAPENTIN [Concomitant]
  4. TAMSULOSIN [Concomitant]
  5. ASPIRIN [Concomitant]
  6. BUPROPION [Concomitant]
  7. NPH INSULIN [Concomitant]
  8. IRBESARTAN [Concomitant]
  9. ZOCOR [Concomitant]

REACTIONS (1)
  - SYNCOPE [None]
